FAERS Safety Report 14413487 (Version 1)
Quarter: 2018Q1

REPORT INFORMATION
  Report Type: Spontaneous
  Country: US (occurrence: US)
  Receive Date: 20180119
  Receipt Date: 20180119
  Transmission Date: 20180509
  Serious: No
  Sender: FDA-Public Use
  Company Number: US-LUNDBECK-DKLU2037707

PATIENT
  Sex: Female

DRUGS (3)
  1. NORTHERA [Suspect]
     Active Substance: DROXIDOPA
     Indication: ORTHOSTATIC HYPOTENSION
     Route: 048
  2. NORTHERA [Suspect]
     Active Substance: DROXIDOPA
     Indication: HEART RATE IRREGULAR
     Dosage: TITRATION SCHEDULE B
     Route: 048
     Dates: start: 20170917
  3. NORTHERA [Suspect]
     Active Substance: DROXIDOPA
     Indication: AUTONOMIC NEUROPATHY
     Route: 048

REACTIONS (6)
  - Nausea [Unknown]
  - Drug ineffective [Unknown]
  - Vertigo [Unknown]
  - Blood pressure fluctuation [Unknown]
  - Dizziness [Unknown]
  - Blood pressure increased [Unknown]
